FAERS Safety Report 14788140 (Version 1)
Quarter: 2018Q2

REPORT INFORMATION
  Report Type: Spontaneous
  Country: DE (occurrence: DE)
  Receive Date: 20180422
  Receipt Date: 20180422
  Transmission Date: 20180711
  Serious: Yes (Hospitalization)
  Sender: FDA-Public Use
  Company Number: DE-AMGEN-DEUSP2018052487

PATIENT
  Age: 52 Year
  Sex: Female

DRUGS (13)
  1. SEVELAMER [Concomitant]
     Active Substance: SEVELAMER
     Dosage: 2.4 G, (1-1-1-0)
  2. METAMIZOL [Concomitant]
     Active Substance: METAMIZOLE SODIUM
     Dosage: UNK
  3. CINACALCET HCL [Suspect]
     Active Substance: CINACALCET HYDROCHLORIDE
     Indication: PRODUCT USED FOR UNKNOWN INDICATION
     Dosage: 60 MG, QD
     Route: 065
  4. ERYTHROPOIETIN [Concomitant]
     Active Substance: ERYTHROPOIETIN
     Dosage: 4000  IE / TAG, (0.5-0-0-0)
  5. SIMVASTATIN. [Concomitant]
     Active Substance: SIMVASTATIN
     Dosage: 40 MG, ( 0-0-0-0.5)
  6. ACTRAPID [Concomitant]
     Active Substance: INSULIN HUMAN
     Dosage: UNK UNK, TID
  7. PROTAPHANE [Concomitant]
     Active Substance: INSULIN HUMAN
     Dosage: UNK, (1-1-1-0)
  8. PARICALCITOL. [Suspect]
     Active Substance: PARICALCITOL
     Indication: PRODUCT USED FOR UNKNOWN INDICATION
     Dosage: 5 MG, Q2WK
     Route: 065
  9. IRON [Concomitant]
     Active Substance: IRON
     Dosage: UNK UNK, QWK
  10. VITAMINS NOS [Concomitant]
     Active Substance: VITAMINS
     Dosage: UNK UNK, QD (0-1-0-0)
  11. COLECALCIFEROL [Concomitant]
     Active Substance: CHOLECALCIFEROL
     Dosage: 20000 INSULIN UNITS, QWK
  12. IRON [Concomitant]
     Active Substance: IRON
     Dosage: 500 MG, TID
  13. METOPROLOL. [Concomitant]
     Active Substance: METOPROLOL
     Dosage: 47.5 MG, (0-1-0-0)

REACTIONS (2)
  - Palpitations [Unknown]
  - Tachycardia [Unknown]
